FAERS Safety Report 20220499 (Version 1)
Quarter: 2021Q4

REPORT INFORMATION
  Report Type: Report from Study
  Country: CA (occurrence: CA)
  Receive Date: 20211223
  Receipt Date: 20211223
  Transmission Date: 20220304
  Serious: No
  Sender: FDA-Public Use
  Company Number: CA-JNJFOC-20211235715

PATIENT
  Age: 55 Year
  Sex: Male
  Weight: 90.75 kg

DRUGS (1)
  1. REMICADE [Suspect]
     Active Substance: INFLIXIMAB
     Indication: Colitis ulcerative
     Route: 042

REACTIONS (3)
  - Bladder disorder [Unknown]
  - Prostatic specific antigen increased [Unknown]
  - Dysuria [Unknown]

NARRATIVE: CASE EVENT DATE: 20211129
